FAERS Safety Report 4586723-2 (Version None)
Quarter: 2005Q1

REPORT INFORMATION
  Report Type: 
  Country: None (occurrence: None)
  Receive Date: 20050217
  Receipt Date: 20050217
  Transmission Date: 20050727
  Serious: No
  Sender: FDA-Public Use
  Company Number: None

PATIENT
  Sex: Male
  Weight: 58.514 kg

DRUGS (3)
  1. PHENYTON SODIUM 1GR CAP [Suspect]
     Indication: EPILEPSY
     Dosage: 300 MG PO QHS
     Route: 048
  2. MIRAPEX [Concomitant]
  3. CA(+) W/ VIT [Concomitant]

REACTIONS (3)
  - AURA [None]
  - DRUG LEVEL DECREASED [None]
  - PHARMACEUTICAL PRODUCT COMPLAINT [None]
